FAERS Safety Report 6475624-0 (Version None)
Quarter: 2009Q4

REPORT INFORMATION
  Report Type: 
  Country: None (occurrence: None)
  Receive Date: 20091204
  Receipt Date: 20090323
  Transmission Date: 20100525
  Serious: No
  Sender: FDA-Public Use
  Company Number: US-BRISTOL-MYERS SQUIBB COMPANY-14558639

PATIENT
  Age: 46 Year
  Sex: Female
  Weight: 63 kg

DRUGS (4)
  1. QUESTRAN LIGHT [Suspect]
     Dosage: USED ON AND OFF.
     Route: 048
     Dates: start: 20050101
  2. COLESTID [Concomitant]
     Dates: start: 20050101, end: 20090310
  3. PREMARIN [Concomitant]
     Dosage: USING FOR YRS.
  4. BYSTOLIC [Concomitant]

REACTIONS (4)
  - DYSGEUSIA [None]
  - DYSPEPSIA [None]
  - FEELING ABNORMAL [None]
  - NAUSEA [None]
